FAERS Safety Report 5775513-0 (Version None)
Quarter: 2008Q2

REPORT INFORMATION
  Report Type: 
  Country: None (occurrence: None)
  Receive Date: 20080617
  Receipt Date: 20080606
  Transmission Date: 20081010
  Serious: Yes (Hospitalization)
  Sender: FDA-Public Use
  Company Number: PHBS2006DE17948

PATIENT
  Age: 45 Year
  Sex: Female

DRUGS (16)
  1. FLUVASTATIN [Interacting]
     Dosage: 40 MG/DAY
     Route: 048
  2. METOPROLOL TARTRATE [Interacting]
     Dosage: 95 MG/DAY
     Route: 048
  3. CIPRAMIL [Interacting]
     Dosage: 40 MG/DAY
     Route: 048
     Dates: end: 20060919
  4. CIPRAMIL [Interacting]
     Dosage: 60 MG/DAY
     Route: 048
     Dates: start: 20060620
  5. NEUROCIL [Suspect]
     Dosage: 200 MG/DAY
     Route: 048
  6. TRIMIPRAMINE MALEATE [Suspect]
     Dosage: 150 MG/DAY
     Route: 048
  7. TAXILAN [Interacting]
     Dosage: 500 MG/DAY
     Route: 048
     Dates: end: 20060926
  8. TAXILAN [Interacting]
     Dosage: 400 TO 350 MG/DAY
     Route: 048
     Dates: start: 20060927, end: 20060928
  9. TAXILAN [Interacting]
     Dosage: 250 MG/DAY
     Route: 048
     Dates: start: 20060928
  10. MST CONTINUS ^MUNDIPHARMA^ [Suspect]
     Dosage: 60 MG/DAY
     Route: 048
     Dates: start: 20060919
  11. ASPIRIN [Concomitant]
     Dosage: 100 MG/DAY
     Route: 048
  12. TOREM [Concomitant]
     Dosage: 10 MG/DAY
     Route: 048
  13. HYDROCHLOROTHIAZIDE [Concomitant]
     Dosage: 25 MG/DAY
     Route: 048
  14. COVERSUM [Concomitant]
     Dosage: 2 MG/DAY
     Route: 048
  15. NEXIUM [Concomitant]
     Dosage: 40 MG/DAY
     Route: 048
  16. GYNAMON [Concomitant]

REACTIONS (12)
  - BLOOD CREATININE INCREASED [None]
  - BODY TEMPERATURE INCREASED [None]
  - BRADYPHRENIA [None]
  - C-REACTIVE PROTEIN INCREASED [None]
  - CONVULSION [None]
  - DRUG INTERACTION [None]
  - INCONTINENCE [None]
  - LOSS OF CONSCIOUSNESS [None]
  - MUSCLE TWITCHING [None]
  - PALLOR [None]
  - TREMOR [None]
  - WHITE BLOOD CELL COUNT INCREASED [None]
